FAERS Safety Report 11472878 (Version 1)
Quarter: 2015Q3

REPORT INFORMATION
  Report Type: Spontaneous
  Country: US (occurrence: US)
  Receive Date: 20150901
  Receipt Date: 20150901
  Transmission Date: 20151125
  Serious: No
  Sender: FDA-Public Use
  Company Number: US-ROCHE-1100167

PATIENT
  Sex: Female
  Weight: 46.76 kg

DRUGS (1)
  1. PEGASYS [Suspect]
     Active Substance: PEGINTERFERON ALFA-2A
     Indication: PRODUCT USED FOR UNKNOWN INDICATION
     Route: 065

REACTIONS (12)
  - Impaired healing [Unknown]
  - Weight decreased [Unknown]
  - Dizziness [Unknown]
  - Pruritus [Unknown]
  - Skin fissures [Unknown]
  - Abdominal discomfort [Unknown]
  - Asthenia [Unknown]
  - Vaginitis bacterial [Unknown]
  - Nausea [Unknown]
  - Headache [Unknown]
  - Localised infection [Unknown]
  - Dry skin [Unknown]
